FAERS Safety Report 6524976-1 (Version None)
Quarter: 2009Q4

REPORT INFORMATION
  Report Type: 
  Country: None (occurrence: None)
  Receive Date: 20091231
  Receipt Date: 20091231
  Transmission Date: 20100525
  Serious: No
  Sender: FDA-Public Use
  Company Number: None

PATIENT
  Age: 4 Year
  Sex: Female
  Weight: 19.5047 kg

DRUGS (1)
  1. ARTICAINE [Suspect]

REACTIONS (6)
  - JAW DISORDER [None]
  - LIP DISORDER [None]
  - LIP PAIN [None]
  - LIP SWELLING [None]
  - SWELLING [None]
  - SWELLING FACE [None]
